FAERS Safety Report 5263181-6 (Version None)
Quarter: 2007Q1

REPORT INFORMATION
  Report Type: 
  Country: None (occurrence: None)
  Receive Date: 20070312
  Receipt Date: 20070306
  Transmission Date: 20070707
  Serious: Yes (Life-Threatening)
  Sender: FDA-Public Use
  Company Number: GB-PFIZER INC-2007017069

PATIENT
  Sex: Female
  Weight: 87 kg

DRUGS (2)
  1. EPIRUBICIN HYDROCHLORIDE [Suspect]
     Indication: BREAST CANCER
     Dates: start: 20061202, end: 20070118
  2. DOCETAXEL [Suspect]
     Indication: BREAST CANCER
     Dates: start: 20061005, end: 20070118

REACTIONS (2)
  - DYSPHASIA [None]
  - ODYNOPHAGIA [None]
